FAERS Safety Report 25629348 (Version 1)
Quarter: 2025Q3

REPORT INFORMATION
  Report Type: Report from Study
  Country: CL (occurrence: CL)
  Receive Date: 20250731
  Receipt Date: 20250731
  Transmission Date: 20251021
  Serious: Yes (Disabling, Other)
  Sender: SANOFI AVENTIS
  Company Number: CL-SA-2025SA187573

PATIENT
  Age: 27 Year
  Sex: Male
  Weight: 84.5 kg

DRUGS (5)
  1. ALGLUCOSIDASE ALFA [Suspect]
     Active Substance: ALGLUCOSIDASE ALFA
     Indication: Glycogen storage disease type II
     Dosage: 36 VIALS OF 50 MG, QOW
     Route: 042
     Dates: start: 202206, end: 2025
  2. ALGLUCOSIDASE ALFA [Suspect]
     Active Substance: ALGLUCOSIDASE ALFA
     Dosage: 36 VIALS OF 50 MG, QOW
     Route: 042
     Dates: start: 2025
  3. ATORVASTATIN [Concomitant]
     Active Substance: ATORVASTATIN
     Indication: Hypercholesterolaemia
     Dosage: 40 MG, QD
     Route: 048
     Dates: start: 202306
  4. CHLORPHENIRAMINE MALEATE [Concomitant]
     Active Substance: CHLORPHENIRAMINE MALEATE
     Dosage: 10 MG, QOW
     Route: 048
     Dates: start: 2022
  5. ACETAMINOPHEN [Concomitant]
     Active Substance: ACETAMINOPHEN
     Dosage: 1 G, QOW
     Route: 048
     Dates: start: 2022

REACTIONS (4)
  - Hypoventilation [Recovering/Resolving]
  - Muscular weakness [Recovering/Resolving]
  - Muscle atrophy [Recovering/Resolving]
  - Fall [Unknown]

NARRATIVE: CASE EVENT DATE: 20250501
